FAERS Safety Report 17399285 (Version 1)
Quarter: 2020Q1

REPORT INFORMATION
  Report Type: Spontaneous
  Country: US (occurrence: US)
  Receive Date: 20200211
  Receipt Date: 20200211
  Transmission Date: 20200409
  Serious: Yes (Other)
  Sender: FDA-Public Use
  Company Number: US-AMGEN-USASP2020020522

PATIENT

DRUGS (1)
  1. IMLYGIC [Suspect]
     Active Substance: TALIMOGENE LAHERPAREPVEC
     Indication: MALIGNANT MELANOMA
     Dosage: UNK
     Route: 026

REACTIONS (8)
  - Herpes dermatitis [Unknown]
  - Gastrointestinal viral infection [Unknown]
  - Rash [Unknown]
  - Wound infection bacterial [Unknown]
  - Pruritus [Unknown]
  - Respiratory tract infection viral [Unknown]
  - Urinary tract infection bacterial [Unknown]
  - Bacterial sepsis [Unknown]
